FAERS Safety Report 6911605-8 (Version None)
Quarter: 2010Q3

REPORT INFORMATION
  Report Type: 
  Country: None (occurrence: None)
  Receive Date: 20100806
  Receipt Date: 20100727
  Transmission Date: 20110219
  Serious: Yes (Other)
  Sender: FDA-Public Use
  Company Number: US-PFIZER INC-2010090664

PATIENT
  Sex: Female

DRUGS (3)
  1. LYRICA [Suspect]
     Indication: PAIN IN JAW
     Dosage: 50 MG, 2X/DAY
     Dates: start: 20080101
  2. LYRICA [Suspect]
     Indication: TRIGEMINAL NEURALGIA
  3. FEMARA [Concomitant]
     Indication: BREAST CANCER

REACTIONS (3)
  - INSOMNIA [None]
  - PAIN [None]
  - THYROID DISORDER [None]
